FAERS Safety Report 6956353-3 (Version None)
Quarter: 2010Q3

REPORT INFORMATION
  Report Type: 
  Country: None (occurrence: None)
  Receive Date: 20100830
  Receipt Date: 20100824
  Transmission Date: 20110219
  Serious: Yes (Hospitalization)
  Sender: FDA-Public Use
  Company Number: A0861742A

PATIENT
  Age: 69 Year
  Sex: Male
  Weight: 86.4 kg

DRUGS (13)
  1. AVANDIA [Suspect]
     Dosage: 4MG PER DAY
     Route: 048
     Dates: start: 20020206, end: 20070503
  2. COUMADIN [Concomitant]
  3. POTASSIUM [Concomitant]
  4. LASIX [Concomitant]
  5. GLYBURIDE [Concomitant]
  6. LISINOPRIL [Concomitant]
  7. GLUCOPHAGE [Concomitant]
  8. PROTONIX [Concomitant]
  9. ELAVIL [Concomitant]
  10. LYRICA [Concomitant]
  11. TRENTAL [Concomitant]
  12. COREG [Concomitant]
  13. DUONEB [Concomitant]

REACTIONS (10)
  - ATRIAL FIBRILLATION [None]
  - ATRIOVENTRICULAR BLOCK [None]
  - CARDIAC FAILURE [None]
  - CARDIAC FAILURE CONGESTIVE [None]
  - CONDITION AGGRAVATED [None]
  - DYSPNOEA EXERTIONAL [None]
  - MYOCARDIAL INFARCTION [None]
  - OEDEMA PERIPHERAL [None]
  - PERIPHERAL VASCULAR DISORDER [None]
  - RENAL FAILURE [None]
